FAERS Safety Report 5273000-X (Version None)
Quarter: 2007Q1

REPORT INFORMATION
  Report Type: 
  Country: None (occurrence: None)
  Receive Date: 20070322
  Receipt Date: 20070313
  Transmission Date: 20070707
  Serious: Yes (Death, Life-Threatening)
  Sender: FDA-Public Use
  Company Number: PL-PFIZER INC-2006080548

PATIENT
  Sex: Male
  Weight: 90 kg

DRUGS (1)
  1. SU-011,248 [Suspect]
     Indication: CLEAR CELL CARCINOMA OF THE KIDNEY
     Route: 048
     Dates: start: 20060504, end: 20060601

REACTIONS (2)
  - PULMONARY THROMBOSIS [None]
  - TOXIC EPIDERMAL NECROLYSIS [None]
